FAERS Safety Report 7008933-7 (Version None)
Quarter: 2010Q3

REPORT INFORMATION
  Report Type: 
  Country: None (occurrence: None)
  Receive Date: 20100923
  Receipt Date: 20100913
  Transmission Date: 20110219
  Serious: Yes (Other)
  Sender: FDA-Public Use
  Company Number: PHHY2010TW45257

PATIENT
  Sex: Male

DRUGS (2)
  1. SEBIVO [Suspect]
  2. ZEFFIX [Concomitant]

REACTIONS (5)
  - ALANINE AMINOTRANSFERASE ABNORMAL [None]
  - ALANINE AMINOTRANSFERASE INCREASED [None]
  - DRUG RESISTANCE [None]
  - HEPATITIS B ANTIGEN POSITIVE [None]
  - VIRAL LOAD INCREASED [None]
